FAERS Safety Report 22211364 (Version 2)
Quarter: 2023Q2

REPORT INFORMATION
  Report Type: Other
  Country: MY (occurrence: MY)
  Receive Date: 20230414
  Receipt Date: 20230424
  Transmission Date: 20230721
  Serious: Yes (Hospitalization)
  Sender: FDA-Public Use
  Company Number: MY-ALVOGEN-2023091138

PATIENT
  Age: 43 Year
  Sex: Female

DRUGS (1)
  1. DEXAMETHASONE [Suspect]
     Active Substance: DEXAMETHASONE
     Indication: COVID-19
     Dosage: TAPERING DOSE OF ORAL DEXAMETHASONE TO COMPLETE FOR A TOTAL OF TWO WEEKS.
     Route: 048

REACTIONS (3)
  - IIIrd nerve paralysis [Recovered/Resolved]
  - Rhinocerebral mucormycosis [Recovered/Resolved]
  - Orbital apex syndrome [Recovered/Resolved]
